FAERS Safety Report 16881054 (Version 6)
Quarter: 2020Q1

REPORT INFORMATION
  Report Type: Spontaneous
  Country: US (occurrence: US)
  Receive Date: 20191003
  Receipt Date: 20200211
  Transmission Date: 20200409
  Serious: No
  Sender: FDA-Public Use
  Company Number: US-PFIZER INC-2016501331

PATIENT
  Age: 82 Year
  Sex: Female

DRUGS (39)
  1. ALLOPURINOL. [Concomitant]
     Active Substance: ALLOPURINOL
     Dosage: 100 MG, 2X/DAY
     Route: 048
  2. METOLAZONE. [Concomitant]
     Active Substance: METOLAZONE
     Dosage: 2.5 MG, 1X/DAY
     Route: 048
  3. OXYBUTYNIN. [Concomitant]
     Active Substance: OXYBUTYNIN CHLORIDE
     Dosage: 5 MG, 1X/DAY
     Route: 048
  4. SARNA SENSITIVE [Concomitant]
     Indication: PRURITUS
     Dosage: UNK, 4X/DAY(TOPICAL, QID, PRN)
     Route: 061
  5. POLYETHYLENE GLYCOL 3350. [Concomitant]
     Active Substance: POLYETHYLENE GLYCOL 3350
     Dosage: 17 G, 1X/DAY
     Route: 048
  6. LYRICA [Suspect]
     Active Substance: PREGABALIN
     Dosage: 200 MG, DAILY (1 CAPSULE MORNING, 1 CAPSULE AFTERNOON, 2 CAPSULES EVERY NIGHT AT BEDTIME)
     Route: 048
     Dates: start: 20160720
  7. ADVAIR HFA [Concomitant]
     Active Substance: FLUTICASONE PROPIONATE\SALMETEROL XINAFOATE
     Dosage: UNK, 2X/DAY (1 PUFF INHALE TWICE A DAY (AS PRESCRIBED))
     Route: 055
  8. CLOTRIMAZOLE. [Concomitant]
     Active Substance: CLOTRIMAZOLE
     Dosage: UNK, 2X/DAY(TOPICAL, BID (TWICE A DAY), # 60 GM)
     Route: 061
  9. MONTELUKAST [MONTELUKAST SODIUM] [Concomitant]
     Active Substance: MONTELUKAST SODIUM
     Dosage: 10 MG, 1X/DAY
     Route: 048
  10. TIOTROPIUM [Concomitant]
     Active Substance: TIOTROPIUM
     Dosage: UNK, DAILY
     Route: 055
  11. LYRICA [Suspect]
     Active Substance: PREGABALIN
     Dosage: 50 MG, 2X/DAY (BID (TWICE A DAY))
     Route: 048
  12. LEVOTHYROXINE. [Concomitant]
     Active Substance: LEVOTHYROXINE
     Dosage: 75 UG, 1X/DAY
     Route: 048
  13. WARFARIN [Concomitant]
     Active Substance: WARFARIN
     Dosage: 7.5 MG, 1X/DAY (7.5 MG ON M/F)
     Route: 048
  14. COREG [Concomitant]
     Active Substance: CARVEDILOL
     Dosage: 6.25 MG, 2X/DAY (BID (TWICE A DAY))
     Route: 048
  15. LASIX [Concomitant]
     Active Substance: FUROSEMIDE
     Dosage: 40 MG, 2X/DAY (BID (TWICE A DAY))
     Route: 048
  16. TRIAMCINOLONE [Concomitant]
     Active Substance: TRIAMCINOLONE
     Indication: RASH PRURITIC
     Dosage: UNK, 2X/DAY(BID TWICE A DAY, # 454 GM)
     Route: 061
  17. SPIRIVA RESPIMAT [Concomitant]
     Active Substance: TIOTROPIUM BROMIDE
     Dosage: 2.5 UG, DAILY(INHALE QDAY)
     Route: 055
  18. FLUTICASONE/SALMETEROL [Concomitant]
     Active Substance: FLUTICASONE PROPIONATE\SALMETEROL XINAFOATE
     Dosage: UNK, 2X/DAY(BID (TWICE A DAY))
     Route: 055
  19. LYRICA [Suspect]
     Active Substance: PREGABALIN
     Dosage: 50 MG, 1X/DAY
     Route: 048
  20. LORTAB [Concomitant]
     Active Substance: ACETAMINOPHEN\HYDROCODONE BITARTRATE
     Indication: PAIN
     Dosage: 3 DF, DAILY (1 TAB IN AM, 2 TABS IN PM) AS NEEDED (AS PRESCRIBED)
     Route: 048
  21. VITAMIN D3 [Concomitant]
     Active Substance: CHOLECALCIFEROL
     Dosage: 400 IU, 1X/DAY
     Route: 048
  22. MIRAPEX [Concomitant]
     Active Substance: PRAMIPEXOLE DIHYDROCHLORIDE
     Dosage: 1.5 MG, DAILY (1 TAB EVERY MORNING AND 2 TABS EVERY NIGHT AT BEDTIME) (AS PRESCRIBED)
     Route: 048
  23. ALBUTEROL [SALBUTAMOL] [Concomitant]
     Active Substance: ALBUTEROL
     Dosage: UNK, 4X/DAY(2.5 MG/3 ML)
  24. ALLOPURINOL. [Concomitant]
     Active Substance: ALLOPURINOL
     Dosage: 100 MG, 1X/DAY
  25. DOCUSATE SODIUM. [Concomitant]
     Active Substance: DOCUSATE SODIUM
     Dosage: 100 MG, 2X/DAY (EVERY 12 HOURS)
     Route: 048
  26. METOLAZONE. [Concomitant]
     Active Substance: METOLAZONE
     Dosage: 2.5 MG, ALTERNATE DAY
     Route: 048
  27. CLOBETASOL 0.05% [Concomitant]
     Active Substance: CLOBETASOL
     Indication: URTICARIA PAPULAR
     Dosage: UNK, 2X/DAY (BID (TWICE A DAY), # 45 GM, APPLY SMALL AMOUNT)
     Route: 061
  28. ACETAMINOPHEN;HYDROCODONE [Concomitant]
     Active Substance: ACETAMINOPHEN\HYDROCODONE
     Dosage: UNK, 4X/DAY(Q6HR)
     Route: 048
  29. ACETAMINOPHEN;HYDROCODONE [Concomitant]
     Active Substance: ACETAMINOPHEN\HYDROCODONE
     Dosage: UNK UNK, 4X/DAY(Q6HR)
     Route: 048
  30. ALBUTEROL [SALBUTAMOL] [Concomitant]
     Active Substance: ALBUTEROL
     Indication: WHEEZING
  31. OMEPRAZOLE. [Concomitant]
     Active Substance: OMEPRAZOLE
     Dosage: 40 MG, 1X/DAY
     Route: 048
  32. LISINOPRIL. [Concomitant]
     Active Substance: LISINOPRIL
     Dosage: 20 MG, 1X/DAY
     Route: 048
  33. NIFEDIPINE. [Concomitant]
     Active Substance: NIFEDIPINE
     Dosage: 30 MG, 1X/DAY
     Route: 048
  34. POTASSIUM CHLORIDE. [Concomitant]
     Active Substance: POTASSIUM CHLORIDE
     Dosage: 10 MEQ, ALTERNATE DAY WITH LASIX
     Route: 048
  35. PRAVASTATIN. [Concomitant]
     Active Substance: PRAVASTATIN
     Dosage: 20 MG, 1X/DAY (EVERY BEDTIME)
     Route: 048
  36. ALBUTEROL [SALBUTAMOL] [Concomitant]
     Active Substance: ALBUTEROL
     Indication: DYSPNOEA
     Dosage: 90 UG, EVERY 4 HRS( INHALE Q4HR,X30 DAY)
     Route: 055
  37. PRAMIPEXOLE. [Concomitant]
     Active Substance: PRAMIPEXOLE
     Dosage: UNK
  38. SPIRIVA [Concomitant]
     Active Substance: TIOTROPIUM BROMIDE MONOHYDRATE
     Dosage: 18 UG, 1X/DAY
     Route: 055
  39. WARFARIN [Concomitant]
     Active Substance: WARFARIN
     Dosage: 5 MG, 1X/DAY (TAKE 5MG ON SUN/TUES/WED/THURS/SAT )
     Route: 048

REACTIONS (13)
  - Feeling abnormal [Unknown]
  - Blood urea increased [Unknown]
  - Blood creatinine increased [Unknown]
  - Blood triglycerides increased [Unknown]
  - Very low density lipoprotein increased [Unknown]
  - Haematocrit decreased [Unknown]
  - Carbon dioxide increased [Unknown]
  - Haemoglobin decreased [Unknown]
  - Mean cell volume increased [Unknown]
  - Brain natriuretic peptide increased [Unknown]
  - Dyskinesia [Unknown]
  - Platelet count decreased [Unknown]
  - Blood glucose increased [Unknown]

NARRATIVE: CASE EVENT DATE: 20190221
